FAERS Safety Report 7754196-4 (Version None)
Quarter: 2011Q3

REPORT INFORMATION
  Report Type: 
  Country: None (occurrence: None)
  Receive Date: 20110915
  Receipt Date: 20110722
  Transmission Date: 20111222
  Serious: Yes (Other)
  Sender: FDA-Public Use
  Company Number: PHHY2011DE73923

PATIENT
  Sex: Female

DRUGS (1)
  1. FEMARA [Suspect]
     Indication: BREAST CANCER
     Dosage: UNK UKN, UNK
     Dates: start: 20100801

REACTIONS (5)
  - ARTHRALGIA [None]
  - POST PROCEDURAL COMPLICATION [None]
  - PERIPHERAL VASCULAR DISORDER [None]
  - BONE PAIN [None]
  - BLOOD CHOLESTEROL INCREASED [None]
